FAERS Safety Report 7055532-7 (Version None)
Quarter: 2010Q4

REPORT INFORMATION
  Report Type: 
  Country: None (occurrence: None)
  Receive Date: 20101021
  Receipt Date: 20101011
  Transmission Date: 20110411
  Serious: Yes (Hospitalization)
  Sender: FDA-Public Use
  Company Number: KR-BAYER-201041772GPV

PATIENT
  Age: 49 Year

DRUGS (9)
  1. GLUCOBAY [Suspect]
     Route: 048
  2. ASPIRIN [Concomitant]
  3. CONCOR [Concomitant]
  4. ISOTRIL [Concomitant]
  5. BITORIN 10/20 [Concomitant]
     Dosage: AS USED: 20/10 MG
  6. ZANIDIB [Concomitant]
  7. GLUCOPHAGE XR [Concomitant]
  8. DIAMICTONG [Concomitant]
  9. GLUCOBAY [Concomitant]

REACTIONS (2)
  - HEPATIC ENZYME INCREASED [None]
  - HYPERGLYCAEMIA [None]
